FAERS Safety Report 17206226 (Version 1)
Quarter: 2020Q1

REPORT INFORMATION
  Report Type: Spontaneous
  Country: US (occurrence: US)
  Receive Date: 20191226
  Receipt Date: 20191226
  Transmission Date: 20200409
  Serious: Yes (Hospitalization, Other)
  Sender: FDA-Public Use
  Company Number: None

PATIENT
  Age: 21 Year
  Sex: Female
  Weight: 72 kg

DRUGS (3)
  1. DULOXETINE 20 MG [Suspect]
     Active Substance: DULOXETINE
     Indication: OBSESSIVE-COMPULSIVE DISORDER
     Dates: start: 20180515, end: 20191224
  2. NUVARING [Concomitant]
     Active Substance: ETHINYL ESTRADIOL\ETONOGESTREL
  3. DULOXETINE 20 MG [Suspect]
     Active Substance: DULOXETINE
     Indication: DEPRESSION
     Dates: start: 20180515, end: 20191224

REACTIONS (7)
  - Nausea [None]
  - Product dose omission [None]
  - Suicide attempt [None]
  - Therapy change [None]
  - Vertigo [None]
  - Dizziness [None]
  - Product prescribing issue [None]

NARRATIVE: CASE EVENT DATE: 20191119
